FAERS Safety Report 10678277 (Version 1)
Quarter: 2014Q4

REPORT INFORMATION
  Report Type: Spontaneous
  Country: US (occurrence: None)
  Receive Date: 20141224
  Receipt Date: 20141224
  Transmission Date: 20150529
  Serious: Yes (Hospitalization)
  Sender: FDA-Public Use
  Company Number: None

PATIENT
  Age: 8 Year
  Sex: Male

DRUGS (3)
  1. MALARONE [Suspect]
     Active Substance: ATOVAQUONE\PROGUANIL HYDROCHLORIDE
     Dates: start: 20131012, end: 20131019
  2. PRIMAQUINE [Concomitant]
     Active Substance: PRIMAQUINE PHOSPHATE
     Dates: start: 20131015, end: 20131029
  3. DOXYCYCLINE. [Suspect]
     Active Substance: DOXYCYCLINE
     Dates: start: 20131012, end: 20131025

REACTIONS (3)
  - Drug-induced liver injury [None]
  - Hepatosplenomegaly [None]
  - Hepatitis E antibody positive [None]

NARRATIVE: CASE EVENT DATE: 20131111
